FAERS Safety Report 11468589 (Version 1)
Quarter: 2015Q3

REPORT INFORMATION
  Report Type: Spontaneous
  Country: PR (occurrence: US)
  Receive Date: 20150908
  Receipt Date: 20150908
  Transmission Date: 20151125
  Serious: Yes (Other)
  Sender: FDA-Public Use
  Company Number: PR-GLAXOSMITHKLINE-US2015GSK114334

PATIENT
  Age: 85 Year
  Sex: Female

DRUGS (4)
  1. ARZERRA [Suspect]
     Active Substance: OFATUMUMAB
     Indication: PRODUCT USED FOR UNKNOWN INDICATION
     Dosage: UNK, U
     Route: 042
     Dates: start: 201507
  2. NORVASC [Concomitant]
     Active Substance: AMLODIPINE BESYLATE
  3. BENADRYL [Suspect]
     Active Substance: DIPHENHYDRAMINE HYDROCHLORIDE
     Indication: PRODUCT USED FOR UNKNOWN INDICATION
     Dosage: UNK, U
     Route: 065
     Dates: start: 201507
  4. SYNTHROID [Concomitant]
     Active Substance: LEVOTHYROXINE SODIUM

REACTIONS (4)
  - Underdose [Unknown]
  - Medical device complication [Unknown]
  - Central venous catheterisation [Unknown]
  - Nervousness [Unknown]

NARRATIVE: CASE EVENT DATE: 201507
